FAERS Safety Report 5574311-0 (Version None)
Quarter: 2007Q4

REPORT INFORMATION
  Report Type: 
  Country: None (occurrence: None)
  Receive Date: 20071221
  Receipt Date: 20071206
  Transmission Date: 20080405
  Serious: Yes (Hospitalization)
  Sender: FDA-Public Use
  Company Number: US021959

PATIENT
  Age: 43 Year
  Sex: Female
  Weight: 54.4316 kg

DRUGS (6)
  1. ACTIQ [Suspect]
     Indication: BACK PAIN
     Dosage: 400 IG QID ORAL
     Route: 048
     Dates: start: 20000101, end: 20051230
  2. ACTIQ [Suspect]
     Indication: NECK PAIN
     Dosage: 400 IG QID ORAL
     Route: 048
     Dates: start: 20000101, end: 20051230
  3. OXYCONTIN [Suspect]
     Indication: BACK PAIN
     Dosage: 7.5 MG TID
     Dates: start: 20010101, end: 20060109
  4. OXYCONTIN [Suspect]
     Indication: NECK PAIN
     Dosage: 7.5 MG TID
     Dates: start: 20010101, end: 20060109
  5. SYNTHROID [Concomitant]
  6. MIDRIN /00450801/ [Concomitant]

REACTIONS (3)
  - DRUG DEPENDENCE [None]
  - DRUG DETOXIFICATION [None]
  - DRUG WITHDRAWAL SYNDROME [None]
